FAERS Safety Report 8314596-0 (Version None)
Quarter: 2012Q2

REPORT INFORMATION
  Report Type: 
  Country: None (occurrence: None)
  Receive Date: 20120426
  Receipt Date: 20120416
  Transmission Date: 20120825
  Serious: Yes (Hospitalization)
  Sender: FDA-Public Use
  Company Number: DE-CELGENEUS-062-21880-12031820

PATIENT
  Age: 73 Year
  Sex: Male
  Weight: 84.1 kg

DRUGS (6)
  1. REVLIMID [Suspect]
     Indication: MYELODYSPLASTIC SYNDROME
     Dosage: 10 MILLIGRAM
     Route: 048
     Dates: start: 20120227, end: 20120318
  2. EXJADE [Concomitant]
     Indication: IRON OVERLOAD
     Dosage: 1500 MILLIGRAM
  3. INSULIN GLARGINE [Concomitant]
     Route: 065
  4. VALPROIC ACID [Concomitant]
     Dosage: 900 MILLIGRAM
  5. INSULIN ACTRAPID [Concomitant]
     Dosage: ACCORDING TO SCHEDULE
     Route: 065
  6. HYDROCHLOROTHIAZIDE [Concomitant]
     Route: 065

REACTIONS (4)
  - VERTIGO [None]
  - GENERAL PHYSICAL HEALTH DETERIORATION [None]
  - NAUSEA [None]
  - CHILLS [None]
